FAERS Safety Report 6441955-3 (Version None)
Quarter: 2009Q4

REPORT INFORMATION
  Report Type: 
  Country: None (occurrence: None)
  Receive Date: 20091112
  Receipt Date: 20091105
  Transmission Date: 20100525
  Serious: Yes (Death)
  Sender: FDA-Public Use
  Company Number: 2009US003831

PATIENT
  Age: 20 Year
  Sex: Male
  Weight: 118 kg

DRUGS (8)
  1. PROGRAF [Suspect]
     Indication: HEART TRANSPLANT
     Dosage: 5 MG, UID/QD
     Dates: start: 19980101, end: 20090901
  2. ATENOLOL [Concomitant]
  3. HYDROCHLOROTHIAZIDE [Concomitant]
  4. ENALAPRIL MALEATE [Concomitant]
  5. ASPIRIN [Concomitant]
  6. MAG-OX (MAGNESIUM OXIDE) [Concomitant]
  7. RAPAMUNE [Concomitant]
  8. AMLODIPINE [Concomitant]

REACTIONS (17)
  - CARDIAC ARREST [None]
  - CHEST DISCOMFORT [None]
  - COMPLICATIONS OF TRANSPLANTED HEART [None]
  - CORONARY ARTERY DISEASE [None]
  - DYSPNOEA [None]
  - ELECTROCARDIOGRAM POOR R-WAVE PROGRESSION [None]
  - ELECTROCARDIOGRAM ST-T CHANGE [None]
  - ELECTROCARDIOGRAM T WAVE INVERSION [None]
  - ELECTROMECHANICAL DISSOCIATION [None]
  - LEFT VENTRICULAR FAILURE [None]
  - LEFT VENTRICULAR HYPERTROPHY [None]
  - MITRAL VALVE INCOMPETENCE [None]
  - TRANSPLANT REJECTION [None]
  - TRICUSPID VALVE INCOMPETENCE [None]
  - VENTRICULAR EXTRASYSTOLES [None]
  - VENTRICULAR FIBRILLATION [None]
  - VENTRICULAR HYPERTROPHY [None]
